FAERS Safety Report 7924482-3 (Version None)
Quarter: 2011Q4

REPORT INFORMATION
  Report Type: 
  Country: None (occurrence: None)
  Receive Date: 20111117
  Receipt Date: 20110322
  Transmission Date: 20120403
  Serious: No
  Sender: FDA-Public Use
  Company Number: US-AMGEN-USASP2011015489

PATIENT
  Age: 39 Year
  Sex: Female

DRUGS (5)
  1. VICODIN ES [Concomitant]
     Dosage: UNK
  2. MIRTAZAPINE [Concomitant]
     Dosage: 15 MG, UNK
  3. CELEBREX [Concomitant]
     Dosage: 100 MG, UNK
  4. XANAX XR [Concomitant]
     Dosage: 1 MG, UNK
  5. ENBREL [Suspect]
     Indication: PRODUCT USED FOR UNKNOWN INDICATION
     Dosage: 50 MG, QWK
     Route: 058

REACTIONS (5)
  - RENAL PAIN [None]
  - SKIN TIGHTNESS [None]
  - BACK PAIN [None]
  - ABDOMINAL DISTENSION [None]
  - SWELLING [None]
